FAERS Safety Report 13010715 (Version 1)
Quarter: 2016Q4

REPORT INFORMATION
  Report Type: Spontaneous
  Country: US (occurrence: US)
  Receive Date: 20161208
  Receipt Date: 20161208
  Transmission Date: 20170207
  Serious: Yes (Hospitalization)
  Sender: FDA-Public Use
  Company Number: US-AMGEN-USASP2016126990

PATIENT
  Age: 68 Year
  Sex: Female

DRUGS (3)
  1. BLINCYTO [Suspect]
     Active Substance: BLINATUMOMAB
     Indication: ACUTE LYMPHOCYTIC LEUKAEMIA
     Dosage: UNK
     Route: 065
     Dates: start: 20160830
  2. RESTORIL [Concomitant]
     Active Substance: TEMAZEPAM
     Dosage: 15 MG, QHS
  3. PRILOSEC [Concomitant]
     Active Substance: OMEPRAZOLE MAGNESIUM
     Dosage: 40 MG, UNK

REACTIONS (2)
  - Blood culture positive [Unknown]
  - Pyrexia [Unknown]
